FAERS Safety Report 9642188 (Version 2)
Quarter: 2013Q4

REPORT INFORMATION
  Report Type: Spontaneous
  Country: CA (occurrence: CA)
  Receive Date: 20131024
  Receipt Date: 20131126
  Transmission Date: 20140711
  Serious: Yes (Other)
  Sender: FDA-Public Use
  Company Number: CA-AMGEN-CANSP2013073624

PATIENT
  Age: 92 Year
  Sex: Female

DRUGS (8)
  1. PROLIA [Suspect]
     Indication: PRODUCT USED FOR UNKNOWN INDICATION
     Route: 065
  2. ZOPICLONE ALMUS [Concomitant]
  3. SYNTHROID [Concomitant]
  4. PREDNISONE                         /00044702/ [Concomitant]
  5. ZYMAR [Concomitant]
  6. VAGIFEM LD [Concomitant]
  7. MURO 128 [Concomitant]
  8. VITAMIN B12                        /00056201/ [Concomitant]

REACTIONS (2)
  - Corneal transplant [Unknown]
  - Skin ulcer [Recovered/Resolved]
